FAERS Safety Report 4692424-2 (Version None)
Quarter: 2005Q2

REPORT INFORMATION
  Report Type: 
  Country: None (occurrence: None)
  Receive Date: 20050616
  Receipt Date: 20050606
  Transmission Date: 20051028
  Serious: Yes (Other)
  Sender: FDA-Public Use
  Company Number: 2005-01-1572

PATIENT
  Age: 63 Year
  Sex: Female

DRUGS (12)
  1. REBETOL [Suspect]
     Indication: HEPATITIS C
     Dosage: 600-400 MG* ORAL
     Route: 048
     Dates: start: 20040816, end: 20040914
  2. REBETOL [Suspect]
     Indication: HEPATITIS C
     Dosage: 600-400 MG* ORAL
     Route: 048
     Dates: start: 20040816, end: 20050111
  3. REBETOL [Suspect]
     Indication: HEPATITIS C
     Dosage: 600-400 MG* ORAL
     Route: 048
     Dates: start: 20040915, end: 20050111
  4. INTRON A [Suspect]
     Indication: HEPATITIS C
     Dosage: 6-3 MU* TIW INTRAMUSCULA
     Route: 030
     Dates: start: 20040816, end: 20040820
  5. INTRON A [Suspect]
     Indication: HEPATITIS C
     Dosage: 6-3 MU* TIW INTRAMUSCULA
     Route: 030
     Dates: start: 20040816, end: 20050110
  6. INTRON A [Suspect]
     Indication: HEPATITIS C
     Dosage: 6-3 MU* TIW INTRAMUSCULA
     Route: 030
     Dates: start: 20040823, end: 20050110
  7. FAMOTIDINE [Concomitant]
  8. METFORMIN HCL [Concomitant]
  9. SUCRALFATE GRANULES [Concomitant]
  10. ZOLPIDEM TARTRATE TABLETS [Concomitant]
  11. SODIUM PICOSULFATE TABLETS [Concomitant]
  12. MAGNESIUM OXIDE TABLETS [Concomitant]

REACTIONS (3)
  - HAEMOPTYSIS [None]
  - HAEMORRHAGE [None]
  - PLATELET COUNT DECREASED [None]
